FAERS Safety Report 13226552 (Version 1)
Quarter: 2017Q1

REPORT INFORMATION
  Report Type: Spontaneous
  Country: IL (occurrence: IL)
  Receive Date: 20170213
  Receipt Date: 20170213
  Transmission Date: 20170428
  Serious: Yes (Hospitalization)
  Sender: FDA-Public Use
  Company Number: IL-JUBILANT CADISTA PHARMACEUTICALS-2017JUB00040

PATIENT
  Age: 41 Year
  Sex: Female

DRUGS (1)
  1. PREDNISONE. [Suspect]
     Active Substance: PREDNISONE
     Indication: SYSTEMIC LUPUS ERYTHEMATOSUS
     Route: 065

REACTIONS (6)
  - Osteomyelitis fungal [Recovered/Resolved]
  - Mucormycosis [Recovered/Resolved]
  - Exophthalmos [Recovered/Resolved]
  - Facial paralysis [Recovered/Resolved]
  - Blindness [Recovered/Resolved]
  - Immunodeficiency [Recovered/Resolved]
